FAERS Safety Report 8720974 (Version 2)
Quarter: 2012Q4

REPORT INFORMATION
  Report Type: 
  Country: US (occurrence: US)
  Receive Date: 20120813
  Receipt Date: 20121126
  Transmission Date: 20130627
  Serious: Yes (Death, Other)
  Sender: FDA-Public Use
  Company Number: US-UCBSA-063346

PATIENT
  Sex: Male

DRUGS (1)
  1. VIMPAT [Suspect]
     Indication: EPILEPSY
     Dates: start: 20110124

REACTIONS (4)
  - Death [Fatal]
  - Pneumonia [Unknown]
  - Respiratory arrest [Unknown]
  - Dyskinesia [Unknown]
